FAERS Safety Report 6809395-2 (Version None)
Quarter: 2010Q2

REPORT INFORMATION
  Report Type: 
  Country: None (occurrence: None)
  Receive Date: 20100625
  Receipt Date: 20100614
  Transmission Date: 20101027
  Serious: Yes (Hospitalization)
  Sender: FDA-Public Use
  Company Number: CRC-10-089

PATIENT
  Age: 62 Year
  Sex: Female
  Weight: 65.9984 kg

DRUGS (9)
  1. METFORMIN HYDROCHLORIDE [Suspect]
     Indication: TYPE 2 DIABETES MELLITUS
     Dosage: 500MG, TWO,TABLETS DAILY,  ORAL
     Route: 048
     Dates: start: 20070101, end: 20100317
  2. METFORMIN HYDROCHLORIDE [Suspect]
     Indication: TYPE 2 DIABETES MELLITUS
     Dosage: 500MG, TWO,TABLETS DAILY,  ORAL
     Route: 048
     Dates: start: 20100318, end: 20100329
  3. STUDY DRUG (SINGLE-BLIND PLACEBO) [Suspect]
     Indication: TYPE 2 DIABETES MELLITUS
     Dosage: ORAL
     Route: 048
     Dates: start: 20100318, end: 20100329
  4. GLIMEPIRIDE [Suspect]
     Indication: TYPE 2 DIABETES MELLITUS
     Dosage: 2MG, 2 IN ONE DAY, ORAL
     Route: 048
     Dates: start: 20070101, end: 20100317
  5. GLIMEPIRIDE [Suspect]
     Indication: TYPE 2 DIABETES MELLITUS
     Dosage: 2MG, 2 IN ONE DAY, ORAL
     Route: 048
     Dates: start: 20100318, end: 20100329
  6. GLIMEPIRIDE [Suspect]
     Indication: TYPE 2 DIABETES MELLITUS
     Dosage: 2MG, 2 IN ONE DAY, ORAL
     Route: 048
     Dates: start: 20100413
  7. LISINOPRIL [Concomitant]
  8. DARVOCET N-50 (ACETAMINOPHEN/PROPOXYPHENE) TABLETS [Concomitant]
  9. LIALDA [Concomitant]

REACTIONS (4)
  - INJURY [None]
  - RIB FRACTURE [None]
  - ROAD TRAFFIC ACCIDENT [None]
  - TIBIA FRACTURE [None]
